FAERS Safety Report 8582984-3 (Version None)
Quarter: 2012Q3

REPORT INFORMATION
  Report Type: 
  Country: None (occurrence: None)
  Receive Date: 20120809
  Receipt Date: 20120725
  Transmission Date: 20120928
  Serious: Yes (Hospitalization, Other)
  Sender: FDA-Public Use
  Company Number: JP-PFIZER INC-2012122818

PATIENT
  Age: 61 Year
  Sex: Female
  Weight: 44.6 kg

DRUGS (4)
  1. CLARITH [Suspect]
     Indication: ATYPICAL MYCOBACTERIAL INFECTION
     Dosage: 600 MG, 1X/DAY
     Route: 048
     Dates: start: 20110816, end: 20111223
  2. EBUTOL [Suspect]
     Indication: ATYPICAL MYCOBACTERIAL INFECTION
     Dosage: 750 MG, 1X/DAY
     Route: 048
     Dates: start: 20110816, end: 20111223
  3. RIFADIN [Suspect]
     Indication: ATYPICAL MYCOBACTERIAL INFECTION
     Dosage: 450 MG, 1X/DAY
     Route: 048
     Dates: start: 20110816, end: 20111215
  4. ATORVASTATIN CALCIUM [Suspect]
     Indication: HYPERLIPIDAEMIA
     Dosage: 10 MG, 1X/DAY
     Route: 048
     Dates: start: 20101028

REACTIONS (2)
  - ATYPICAL MYCOBACTERIAL INFECTION [None]
  - TYPE 2 DIABETES MELLITUS [None]
